FAERS Safety Report 18929603 (Version 2)
Quarter: 2021Q3

REPORT INFORMATION
  Report Type: Spontaneous
  Country: NL (occurrence: DK)
  Receive Date: 20210223
  Receipt Date: 20210729
  Transmission Date: 20211014
  Serious: Yes (Death, Life-Threatening, Hospitalization, Disabling, Other)
  Sender: FDA-Public Use
  Company Number: DK-FRESENIUS KABI-FK202101485

PATIENT
  Age: 5 Year
  Sex: Male

DRUGS (33)
  1. PROPOFOL (MANUFACTURER UNKNOWN) [Suspect]
     Active Substance: PROPOFOL
     Indication: PRODUCT USED FOR UNKNOWN INDICATION
     Dosage: UNK
     Route: 065
  2. CIPROFLOXACIN (MANUFACTURER UNKNOWN) [Suspect]
     Active Substance: CIPROFLOXACIN
     Indication: PRODUCT USED FOR UNKNOWN INDICATION
     Dosage: UNK
     Route: 065
  3. PIPERACILLIN/TAZOBACTAM (MANUFACTURER UNKNOWN) [Suspect]
     Active Substance: PIPERACILLIN SODIUM\TAZOBACTAM SODIUM
     Indication: RESPIRATORY ARREST
     Dosage: UNK?PIPERACILLIN AND TAZOBACTAM
     Route: 065
  4. GENTAMICIN SULFATE. [Suspect]
     Active Substance: GENTAMICIN SULFATE
     Indication: PNEUMOCOCCAL SEPSIS
     Route: 065
  5. DORNASE ALFA. [Suspect]
     Active Substance: DORNASE ALFA
     Indication: INTERSTITIAL LUNG DISEASE
     Dosage: UNK
     Route: 065
  6. FENTANYL CITRATE. [Suspect]
     Active Substance: FENTANYL CITRATE
     Indication: PRODUCT USED FOR UNKNOWN INDICATION
     Dosage: UNK
     Route: 065
  7. BENZYLPENICILLIN [Suspect]
     Active Substance: PENICILLIN G
     Indication: PRODUCT USED FOR UNKNOWN INDICATION
     Dosage: UNK
     Route: 065
  8. AMOXICILLIN/CLAVULANATE POTASSIUM [Suspect]
     Active Substance: AMOXICILLIN\CLAVULANATE POTASSIUM
     Indication: PRODUCT USED FOR UNKNOWN INDICATION
     Dosage: UNK
     Route: 065
     Dates: start: 20150611
  9. RUBELLA VIRUS VACCINE LIVE NOS [Suspect]
     Active Substance: RUBELLA VIRUS STRAIN WISTAR RA 27/3 LIVE ANTIGEN
     Indication: PRODUCT USED FOR UNKNOWN INDICATION
     Dosage: UNK?RUBELLA VIRUS/VACCINE
     Route: 065
  10. DORNASE ALFA. [Suspect]
     Active Substance: DORNASE ALFA
     Indication: INTERSTITIAL LUNG DISEASE
     Dosage: UNK
     Route: 065
  11. PIPERACILLIN/TAZOBACTAM (MANUFACTURER UNKNOWN) [Suspect]
     Active Substance: PIPERACILLIN SODIUM\TAZOBACTAM SODIUM
     Indication: VOMITING
     Dosage: UNK
     Route: 065
  12. GENTAMICIN SULFATE. [Suspect]
     Active Substance: GENTAMICIN SULFATE
     Indication: RUBELLA IMMUNISATION
     Route: 065
  13. SALBUTAMOL [Suspect]
     Active Substance: ALBUTEROL
     Indication: PRODUCT USED FOR UNKNOWN INDICATION
     Dosage: UNK
     Route: 065
  14. SODIUM CHLORIDE. [Suspect]
     Active Substance: SODIUM CHLORIDE
     Indication: PNEUMONIA
     Dosage: UNK
     Route: 065
  15. SODIUM CHLORIDE. [Suspect]
     Active Substance: SODIUM CHLORIDE
     Indication: PRODUCT USED FOR UNKNOWN INDICATION
     Dosage: UNK
     Route: 065
  16. FENTANYL. [Suspect]
     Active Substance: FENTANYL
     Indication: PRODUCT USED FOR UNKNOWN INDICATION
     Dosage: UNK
     Route: 065
  17. MEROPENEM (MANUFACTURER UNKNOWN) [Suspect]
     Active Substance: MEROPENEM
     Indication: ANTIBIOTIC THERAPY
     Dosage: UNK
     Route: 065
  18. POTASSIUM CHLORIDE. [Suspect]
     Active Substance: POTASSIUM CHLORIDE
     Indication: PNEUMONIA
     Dosage: UNK
     Route: 065
  19. PHENOXYMETHYLPENICILLIN [Suspect]
     Active Substance: PENICILLIN V
     Indication: ANTIBIOTIC THERAPY
     Dosage: UNK
     Route: 065
  20. GENTAMICIN SULFATE. [Suspect]
     Active Substance: GENTAMICIN SULFATE
     Indication: MUMPS IMMUNISATION
     Route: 042
  21. CEFUROXIME (MANUFACTURER UNKNOWN) [Suspect]
     Active Substance: CEFUROXIME
     Indication: ANTIBIOTIC THERAPY
     Dosage: UNK?CEFUROXIME AXETIL
     Route: 042
  22. M?M?RVAXPRO [Suspect]
     Active Substance: MEASLES VIRUS STRAIN ENDERS^ ATTENUATED EDMONSTON LIVE ANTIGEN\MUMPS VIRUS STRAIN B LEVEL JERYL LYNN LIVE ANTIGEN\RUBELLA VIRUS STRAIN WISTAR RA 27/3 LIVE ANTIGEN
     Indication: PNEUMOCOCCAL SEPSIS
     Dosage: UNK
     Route: 065
  23. AMOXICILLIN/CLAVULANATE POTASSIUM [Suspect]
     Active Substance: AMOXICILLIN\CLAVULANATE POTASSIUM
     Indication: PNEUMONIA
     Dosage: UNK
     Route: 065
     Dates: start: 20160714, end: 20160720
  24. GENTAMICIN SULFATE. [Suspect]
     Active Substance: GENTAMICIN SULFATE
     Indication: ANTIBIOTIC THERAPY
     Route: 065
  25. GENTAMICIN SULFATE. [Suspect]
     Active Substance: GENTAMICIN SULFATE
     Indication: MEASLES IMMUNISATION
     Route: 065
  26. GENTAMICIN SULFATE. [Suspect]
     Active Substance: GENTAMICIN SULFATE
     Indication: ANTIBIOTIC THERAPY
     Route: 042
  27. MEASLES VIRUS VACCINE, LIVE [Suspect]
     Active Substance: MEASLES VIRUS STRAIN ENDERS^ ATTENUATED EDMONSTON LIVE ANTIGEN
     Indication: PRODUCT USED FOR UNKNOWN INDICATION
     Dosage: UNK?MEASLES VACCINE LIVE
     Route: 065
  28. SODIUM CITRATE DIHYDRATE [Suspect]
     Active Substance: TRISODIUM CITRATE DIHYDRATE
     Indication: PRODUCT USED FOR UNKNOWN INDICATION
     Dosage: UNK
     Route: 065
  29. POTASSIUM CHLORIDE. [Suspect]
     Active Substance: POTASSIUM CHLORIDE
     Indication: PNEUMONIA
     Dosage: UNK
     Route: 065
  30. RUBELLA VIRUS VACCINE LIVE NOS [Suspect]
     Active Substance: RUBELLA VIRUS STRAIN WISTAR RA 27/3 LIVE ANTIGEN
     Dosage: UNK
     Route: 065
  31. GLUCOSE [Suspect]
     Active Substance: DEXTROSE
     Indication: PNEUMONIA
     Dosage: UNK
     Route: 065
  32. MUMPS VACCINE [Suspect]
     Active Substance: MUMPS VIRUS STRAIN B LEVEL JERYL LYNN LIVE ANTIGEN
     Indication: PRODUCT USED FOR UNKNOWN INDICATION
     Dosage: UNK?MUMPS VIRUS/VACCINE
     Route: 065
  33. SODIUM CITRATE DIHYDRATE [Suspect]
     Active Substance: TRISODIUM CITRATE DIHYDRATE
     Indication: PNEUMONIA
     Dosage: UNK
     Route: 065

REACTIONS (33)
  - Increased bronchial secretion [Unknown]
  - Disease complication [Not Recovered/Not Resolved]
  - Dyspnoea [Unknown]
  - Muscular weakness [Recovering/Resolving]
  - Tachypnoea [Unknown]
  - Interstitial lung disease [Unknown]
  - Condition aggravated [Unknown]
  - Chest X-ray abnormal [Unknown]
  - Circulatory collapse [Fatal]
  - Intestinal ischaemia [Fatal]
  - Inflammation [Unknown]
  - Ischaemic cerebral infarction [Unknown]
  - Pneumococcal sepsis [Recovered/Resolved]
  - Dehydration [Recovered/Resolved]
  - Dysphagia [Unknown]
  - Pneumonia [Recovered/Resolved]
  - Brain injury [Fatal]
  - Spinal muscular atrophy [Unknown]
  - Sputum increased [Unknown]
  - Malaise [Unknown]
  - Diarrhoea [Recovered/Resolved]
  - Pyrexia [Unknown]
  - Resuscitation [Unknown]
  - Metabolic disorder [Unknown]
  - Respiratory arrest [Unknown]
  - Pneumonia aspiration [Not Recovered/Not Resolved]
  - Motor dysfunction [Unknown]
  - Injury [Unknown]
  - Atelectasis [Recovering/Resolving]
  - Lung consolidation [Unknown]
  - Vomiting [Unknown]
  - Cerebral ischaemia [Fatal]
  - Respiratory tract infection bacterial [Unknown]

NARRATIVE: CASE EVENT DATE: 20160620
